FAERS Safety Report 8417020-2 (Version None)
Quarter: 2012Q2

REPORT INFORMATION
  Report Type: 
  Country: None (occurrence: None)
  Receive Date: 20120606
  Receipt Date: 20120602
  Transmission Date: 20120825
  Serious: Yes (Other)
  Sender: FDA-Public Use
  Company Number: PHHY2012MX044811

PATIENT
  Sex: Female

DRUGS (3)
  1. AVAPENA [Concomitant]
     Indication: DERMATITIS ALLERGIC
  2. EXFORGE [Suspect]
     Indication: HYPERTENSION
     Dosage: 2 DF (160/5 MG) PER DAY
  3. ASPIRIN [Concomitant]
     Indication: CARDIOVASCULAR EVENT PROPHYLAXIS
     Dosage: UNK UKN, UNK

REACTIONS (1)
  - SALMONELLOSIS [None]
